FAERS Safety Report 9934108 (Version 1)
Quarter: 2014Q1

REPORT INFORMATION
  Report Type: Spontaneous
  Country: SE (occurrence: None)
  Receive Date: 20140226
  Receipt Date: 20140226
  Transmission Date: 20141002
  Serious: Yes (Other)
  Sender: FDA-Public Use
  Company Number: 2014HINLIT0125

PATIENT
  Age: 58 Year
  Sex: Male

DRUGS (1)
  1. LITHIUM [Suspect]
     Indication: SCHIZOPHRENIA

REACTIONS (1)
  - Renal failure chronic [None]
